FAERS Safety Report 12031115 (Version 1)
Quarter: 2016Q1

REPORT INFORMATION
  Report Type: Report from Study
  Country: US (occurrence: US)
  Receive Date: 20160207
  Receipt Date: 20160207
  Transmission Date: 20160526
  Serious: No
  Sender: FDA-Public Use
  Company Number: US-ABBVIE-15K-163-1507334-00

PATIENT
  Sex: Female

DRUGS (1)
  1. HUMIRA [Suspect]
     Active Substance: ADALIMUMAB
     Indication: COLITIS ULCERATIVE
     Route: 058
     Dates: start: 201505, end: 20150909

REACTIONS (7)
  - Blood pressure increased [Recovered/Resolved]
  - Rectal haemorrhage [Unknown]
  - Infertility [Recovered/Resolved]
  - Injection site induration [Recovered/Resolved with Sequelae]
  - Injection site urticaria [Unknown]
  - Injection site induration [Unknown]
  - Injection site urticaria [Recovered/Resolved with Sequelae]

NARRATIVE: CASE EVENT DATE: 2015
